FAERS Safety Report 20143746 (Version 1)
Quarter: 2021Q4

REPORT INFORMATION
  Report Type: Spontaneous
  Country: FR (occurrence: FR)
  Receive Date: 20211203
  Receipt Date: 20211203
  Transmission Date: 20220303
  Serious: Yes (Hospitalization)
  Sender: FDA-Public Use
  Company Number: None

PATIENT
  Age: 53 Year
  Sex: Female

DRUGS (6)
  1. OXAZEPAM [Suspect]
     Active Substance: OXAZEPAM
     Indication: Initial insomnia
     Dosage: 50 MG, QD (IF NECESSARY)
     Route: 048
     Dates: start: 20211006, end: 20211012
  2. AMOXICILLIN SODIUM [Suspect]
     Active Substance: AMOXICILLIN SODIUM
     Indication: Infection prophylaxis
     Dosage: 1 G, BID (12HOUR)
     Route: 041
     Dates: start: 20211007, end: 20211020
  3. MELPHALAN [Suspect]
     Active Substance: MELPHALAN
     Indication: Plasma cell myeloma
     Dosage: 330 MG, CYC
     Route: 041
     Dates: start: 20210914, end: 20210914
  4. ACYCLOVIR [Suspect]
     Active Substance: ACYCLOVIR
     Indication: Infection prophylaxis
     Dosage: 250 MG, TID (8 HOUR)
     Route: 041
     Dates: start: 20210920, end: 20211021
  5. OXYCODONE [Suspect]
     Active Substance: OXYCODONE
     Indication: Product used for unknown indication
     Dosage: 20 MG, QD
     Route: 048
     Dates: start: 20211013, end: 20211015
  6. ONDANSETRON [Suspect]
     Active Substance: ONDANSETRON
     Indication: Antiemetic supportive care
     Dosage: 16 MG, QD (24 HOUR)
     Route: 041
     Dates: start: 20210917, end: 20211013

REACTIONS (2)
  - Gastritis [Recovered/Resolved]
  - Gastrooesophageal reflux disease [Recovered/Resolved]

NARRATIVE: CASE EVENT DATE: 20211018
